FAERS Safety Report 4289962-3 (Version None)
Quarter: 2004Q1

REPORT INFORMATION
  Report Type: 
  Country: None (occurrence: None)
  Receive Date: 20040209
  Receipt Date: 20031106
  Transmission Date: 20041129
  Serious: Yes (Other)
  Sender: FDA-Public Use
  Company Number: JP-ROCHE-351171

PATIENT
  Sex: Male
  Weight: 71.2 kg

DRUGS (9)
  1. ROCEPHIN [Suspect]
     Route: 042
     Dates: start: 20030910, end: 20030912
  2. NIFLAN [Suspect]
     Route: 048
     Dates: start: 20030908, end: 20030910
  3. NIFLAN [Suspect]
     Route: 048
     Dates: start: 20030913, end: 20030915
  4. PL [Suspect]
     Route: 048
     Dates: start: 20030908, end: 20030910
  5. MAXIPIME [Concomitant]
     Route: 042
     Dates: start: 20030913, end: 20030913
  6. MEROPEN [Concomitant]
     Indication: PNEUMONIA
     Route: 042
     Dates: start: 20030914, end: 20030920
  7. RESPLEN [Concomitant]
     Indication: COUGH
     Route: 048
     Dates: start: 20030913, end: 20030915
  8. CLARITHROMYCIN [Concomitant]
     Indication: PNEUMONIA
     Route: 048
     Dates: start: 20030916, end: 20030920
  9. LOXONIN [Concomitant]
     Route: 048
     Dates: start: 20030916, end: 20030920

REACTIONS (2)
  - LIVER DISORDER [None]
  - PNEUMONIA [None]
